FAERS Safety Report 12393471 (Version 1)
Quarter: 2016Q2

REPORT INFORMATION
  Report Type: Spontaneous
  Country: US (occurrence: US)
  Receive Date: 20160523
  Receipt Date: 20160523
  Transmission Date: 20160815
  Serious: No
  Sender: FDA-Public Use
  Company Number: US-TAKEDA-2016TUS008431

PATIENT
  Age: 49 Year
  Sex: Female
  Weight: 108.84 kg

DRUGS (2)
  1. CONTRAVE [Suspect]
     Active Substance: BUPROPION HYDROCHLORIDE\NALTREXONE HYDROCHLORIDE
     Indication: DRUG DEPENDENCE
  2. CONTRAVE [Suspect]
     Active Substance: BUPROPION HYDROCHLORIDE\NALTREXONE HYDROCHLORIDE
     Indication: ALCOHOLISM
     Dosage: 8M/90 MG UNK
     Route: 065

REACTIONS (2)
  - No adverse event [Unknown]
  - Drug prescribing error [Unknown]
